FAERS Safety Report 11811891 (Version 3)
Quarter: 2016Q1

REPORT INFORMATION
  Report Type: Spontaneous
  Country: JP (occurrence: JP)
  Receive Date: 20151208
  Receipt Date: 20160205
  Transmission Date: 20160525
  Serious: Yes (Other)
  Sender: FDA-Public Use
  Company Number: JP-PFIZER INC-2015414536

PATIENT
  Age: 88 Year
  Sex: Female

DRUGS (6)
  1. ARTIST [Concomitant]
     Active Substance: CARVEDILOL
     Indication: CARDIAC FAILURE
     Dosage: 2.5 MG, DAILY
     Route: 048
     Dates: start: 20100222
  2. BLOPRESS [Concomitant]
     Active Substance: CANDESARTAN CILEXETIL
     Indication: HYPERTENSION
     Dosage: 2 MG, DAILY
     Route: 048
     Dates: start: 20100222
  3. AMLODIPINE [Concomitant]
     Active Substance: AMLODIPINE BESYLATE
     Indication: HYPERTENSION
     Dosage: 5 MG, DAILY
     Route: 048
     Dates: start: 20100222
  4. TICLOPIDINE [Concomitant]
     Active Substance: TICLOPIDINE
     Indication: LACUNAR INFARCTION
     Dosage: 100 MG, DAILY
     Route: 048
     Dates: start: 20100222
  5. LYRICA [Suspect]
     Active Substance: PREGABALIN
     Indication: NEURALGIA
     Dosage: 25 MG, 2X/DAY
     Route: 048
     Dates: start: 20151009, end: 20151103
  6. NIKORANMART [Concomitant]
     Active Substance: NICORANDIL
     Indication: ANGINA PECTORIS
     Dosage: 10 MG, DAILY
     Route: 048
     Dates: start: 20100222

REACTIONS (8)
  - Muscular weakness [Recovering/Resolving]
  - Disease progression [Recovering/Resolving]
  - Alopecia [Recovering/Resolving]
  - Internal haemorrhage [Recovering/Resolving]
  - Peripheral swelling [Recovering/Resolving]
  - Constipation [Recovering/Resolving]
  - Gait disturbance [Recovering/Resolving]
  - Fibrin D dimer increased [Unknown]

NARRATIVE: CASE EVENT DATE: 201510
